FAERS Safety Report 10301317 (Version 4)
Quarter: 2014Q4

REPORT INFORMATION
  Report Type: Spontaneous
  Country: US (occurrence: US)
  Receive Date: 20140714
  Receipt Date: 20141008
  Transmission Date: 20150528
  Serious: Yes (Hospitalization, Other)
  Sender: FDA-Public Use
  Company Number: US-AMGEN INC.-USASP2014052054

PATIENT
  Age: 67 Year
  Sex: Female
  Weight: 68.48 kg

DRUGS (7)
  1. ZANAFLEX [Concomitant]
     Active Substance: TIZANIDINE HYDROCHLORIDE
     Dosage: 4 MG, AS NECESSARY NIGHTLY
  2. COUMADIN [Concomitant]
     Active Substance: WARFARIN SODIUM
     Dosage: 10 MG, ONE TABLET AS DIRECTED
  3. LORAZEPAM. [Concomitant]
     Active Substance: LORAZEPAM
     Dosage: 0.5 MG, ONE TABLET BID
  4. PREDNISONE. [Concomitant]
     Active Substance: PREDNISONE
     Dosage: 5 MG, 2 TABLETS DAILY
  5. ENBREL [Suspect]
     Active Substance: ETANERCEPT
     Indication: PSORIATIC ARTHROPATHY
     Dosage: 50 MG, QWK
     Route: 058
     Dates: start: 20140423, end: 20140722
  6. NUCYNTA [Concomitant]
     Active Substance: TAPENTADOL HYDROCHLORIDE
     Indication: PAIN
     Dosage: 75 MG, UNK 1 TAB TWICE A DAY AS NEEDED
  7. HYDROCODONE [Concomitant]
     Active Substance: HYDROCODONE
     Dosage: ONE TABLET

REACTIONS (13)
  - Latent tuberculosis [Not Recovered/Not Resolved]
  - Alopecia [Unknown]
  - Back pain [Unknown]
  - Drug intolerance [Unknown]
  - Injection site warmth [Not Recovered/Not Resolved]
  - Injection site reaction [Unknown]
  - Injection site swelling [Unknown]
  - White blood cell count decreased [Unknown]
  - Dactylitis [Unknown]
  - Injection site erythema [Unknown]
  - Injection site bruising [Unknown]
  - Peripheral swelling [Unknown]
  - Diarrhoea [Not Recovered/Not Resolved]

NARRATIVE: CASE EVENT DATE: 2014
